FAERS Safety Report 13896564 (Version 1)
Quarter: 2017Q3

REPORT INFORMATION
  Report Type: Spontaneous
  Country: US (occurrence: US)
  Receive Date: 20170823
  Receipt Date: 20170823
  Transmission Date: 20171127
  Serious: Yes (Other)
  Sender: FDA-Public Use
  Company Number: US-SA-2017SA152793

PATIENT
  Age: 79 Year
  Sex: Male

DRUGS (2)
  1. DULCOLAX (BISACODYL) [Suspect]
     Active Substance: BISACODYL
     Indication: CONSTIPATION
     Route: 065
  2. MILK OF MAGNESIA [Concomitant]
     Active Substance: MAGNESIUM HYDROXIDE

REACTIONS (9)
  - Rectal haemorrhage [Unknown]
  - Syncope [Unknown]
  - Abdominal discomfort [Unknown]
  - Intentional overdose [Unknown]
  - Fall [Unknown]
  - Dizziness [Unknown]
  - Hyperhidrosis [Unknown]
  - Contusion [Unknown]
  - Proctalgia [Unknown]
